FAERS Safety Report 7244705-6 (Version None)
Quarter: 2011Q1

REPORT INFORMATION
  Report Type: 
  Country: None (occurrence: None)
  Receive Date: 20110126
  Receipt Date: 20110119
  Transmission Date: 20110831
  Serious: Yes (Hospitalization)
  Sender: FDA-Public Use
  Company Number: US-BIOGENIDEC-2010BI036368

PATIENT
  Age: 55 Year
  Sex: Female

DRUGS (2)
  1. AVONEX [Suspect]
     Route: 030
     Dates: start: 20060811
  2. AVONEX [Suspect]
     Indication: MULTIPLE SCLEROSIS
     Route: 030
     Dates: start: 19970101, end: 19971102

REACTIONS (9)
  - PAIN [None]
  - BLOOD PRESSURE DECREASED [None]
  - VISUAL IMPAIRMENT [None]
  - PARAESTHESIA [None]
  - HYPOAESTHESIA [None]
  - URINARY TRACT INFECTION [None]
  - CYSTITIS [None]
  - COGNITIVE DISORDER [None]
  - SYNCOPE [None]
